FAERS Safety Report 4860874-7 (Version None)
Quarter: 2005Q4

REPORT INFORMATION
  Report Type: 
  Country: None (occurrence: None)
  Receive Date: 20051216
  Receipt Date: 20051213
  Transmission Date: 20060501
  Serious: Yes (Hospitalization)
  Sender: FDA-Public Use
  Company Number: 200513838GDS

PATIENT
  Age: 68 Year
  Sex: Male
  Weight: 73 kg

DRUGS (6)
  1. ASPIRIN [Suspect]
  2. MICARDIS HCT [Suspect]
     Indication: HYPERTENSION
     Dosage: 80/12.5 MG
  3. NORVASC [Suspect]
     Dosage: 5 MG, TOTAL DAILY
  4. CARVEDILOL [Suspect]
     Dosage: 25 MG, TOTAL DAILY
  5. LISI (LISINOPRIL DIHYDRATE) [Suspect]
     Dosage: 10 MG, TOTAL DAILY
  6. ZOCOR [Suspect]

REACTIONS (4)
  - CARDIAC FAILURE [None]
  - CONDITION AGGRAVATED [None]
  - HYPERTENSION [None]
  - MYOCARDIAL INFARCTION [None]
